FAERS Safety Report 9403481 (Version 4)
Quarter: 2014Q3

REPORT INFORMATION
  Report Type: Report from Study
  Country: FR (occurrence: FR)
  Receive Date: 20130716
  Receipt Date: 20140829
  Transmission Date: 20150326
  Serious: Yes (Death, Life-Threatening, Hospitalization, Other)
  Sender: FDA-Public Use
  Company Number: FR-EXELIXIS-XL18413002623

PATIENT
  Age: 69 Year
  Sex: Male

DRUGS (11)
  1. XL184 [Suspect]
     Active Substance: CABOZANTINIB
     Indication: PROSTATE CANCER
     Dosage: 5 MG, BID
     Route: 048
     Dates: start: 20130311, end: 20130317
  2. FORLAX [Concomitant]
     Active Substance: POLYETHYLENE GLYCOL 4000
  3. MEDROL [Concomitant]
     Active Substance: METHYLPREDNISOLONE
  4. XL184 [Suspect]
     Active Substance: CABOZANTINIB
     Dosage: 60 MG, QD
     Route: 048
     Dates: start: 20130404, end: 20130421
  5. XL184 [Suspect]
     Active Substance: CABOZANTINIB
     Dosage: 5 MG, BID
     Route: 048
     Dates: start: 20130404, end: 20130421
  6. ACTISKENAN [Concomitant]
     Active Substance: MORPHINE SULFATE
  7. XL184 [Suspect]
     Active Substance: CABOZANTINIB
     Indication: PROSTATE CANCER
     Dosage: 60 MG, QD
     Route: 048
     Dates: start: 20130311, end: 20130317
  8. COOLMETEC [Concomitant]
     Active Substance: HYDROCHLOROTHIAZIDE\OLMESARTAN MEDOXOMIL
  9. MEDIATENSYL [Concomitant]
     Active Substance: URAPIDIL
  10. RANITIDINE [Concomitant]
     Active Substance: RANITIDINE\RANITIDINE HYDROCHLORIDE
  11. SKENAN [Concomitant]
     Active Substance: MORPHINE SULFATE

REACTIONS (7)
  - Thrombocytopenia [Not Recovered/Not Resolved]
  - Anaemia [Not Recovered/Not Resolved]
  - Toxicity to various agents [Fatal]
  - Neutropenia [Recovered/Resolved]
  - Hyperkalaemia [Not Recovered/Not Resolved]
  - Lung infection [Not Recovered/Not Resolved]
  - Respiratory failure [Not Recovered/Not Resolved]

NARRATIVE: CASE EVENT DATE: 20130422
